FAERS Safety Report 10234549 (Version 1)
Quarter: 2014Q2

REPORT INFORMATION
  Report Type: Spontaneous
  Country: JP (occurrence: JP)
  Receive Date: 20140613
  Receipt Date: 20140613
  Transmission Date: 20141212
  Serious: Yes (Death, Other)
  Sender: FDA-Public Use
  Company Number: PHHY2014JP068534

PATIENT
  Sex: 0

DRUGS (10)
  1. METOCLOPRAMIDE [Suspect]
     Indication: NAUSEA
  2. FLUOROURACIL [Suspect]
     Indication: RECTAL ADENOCARCINOMA
  3. IRINOTECAN [Suspect]
     Indication: RECTAL ADENOCARCINOMA
  4. OXALIPLATIN [Suspect]
     Indication: RECTAL ADENOCARCINOMA
  5. GRANISETRON HYDROCHLORIDE [Suspect]
     Indication: RECTAL ADENOCARCINOMA
  6. BETAMETHASONE [Suspect]
     Indication: RECTAL ADENOCARCINOMA
     Dosage: 4 MG, PER DAY
  7. OLANZAPINE [Suspect]
     Indication: RECTAL ADENOCARCINOMA
     Dosage: 1.25 MG, EVERY NIGHT
  8. BEVACIZUMAB [Concomitant]
     Dates: end: 201102
  9. GLYCEROL [Concomitant]
     Dosage: 400 ML, DAILY
  10. URACIL [Concomitant]
     Indication: RECTAL ADENOCARCINOMA

REACTIONS (12)
  - Death [Fatal]
  - Metastases to lung [Unknown]
  - Metastases to central nervous system [Unknown]
  - Brain oedema [Unknown]
  - Nausea [Recovering/Resolving]
  - Vomiting [Recovering/Resolving]
  - Vertigo [Recovering/Resolving]
  - Hemiplegia [Not Recovered/Not Resolved]
  - Headache [Not Recovered/Not Resolved]
  - Speech disorder [Unknown]
  - Malignant neoplasm progression [Unknown]
  - Treatment failure [Unknown]
